FAERS Safety Report 4557214-X (Version None)
Quarter: 2005Q1

REPORT INFORMATION
  Report Type: 
  Country: None (occurrence: None)
  Receive Date: 20050118
  Receipt Date: 20050106
  Transmission Date: 20050727
  Serious: Yes (Hospitalization)
  Sender: FDA-Public Use
  Company Number: 2005CG00055

PATIENT
  Age: 90 Year
  Sex: Female

DRUGS (6)
  1. OMEPRAZOLE [Suspect]
     Indication: GASTRITIS
     Dosage: 20 MG QD PO
     Route: 048
     Dates: start: 20030101, end: 20040424
  2. OMEPRAZOLE [Suspect]
     Indication: GASTRODUODENITIS
     Dosage: 20 MG QD PO
     Route: 048
     Dates: start: 20030101, end: 20040424
  3. DIFFU K [Suspect]
     Indication: HYPOKALAEMIA
     Dosage: 2 DF QD PO
     Route: 048
     Dates: start: 20030101, end: 20040424
  4. KARDEGIC/FRA/ [Suspect]
     Dosage: 33 MG QD PO
     Route: 048
     Dates: start: 20030101, end: 20040424
  5. ARICEPT [Suspect]
     Indication: DEMENTIA ALZHEIMER'S TYPE
     Dosage: 5 MG QD PO
     Route: 048
     Dates: start: 20030101, end: 20040424
  6. LASILIX [Suspect]
     Indication: ESSENTIAL HYPERTENSION
     Dosage: 40 MG QD PO
     Route: 048
     Dates: start: 20030101, end: 20040424

REACTIONS (3)
  - ACUTE GENERALISED EXANTHEMATOUS PUSTULOSIS [None]
  - DYSPNOEA [None]
  - LUNG DISORDER [None]
